FAERS Safety Report 4476931-3 (Version None)
Quarter: 2004Q4

REPORT INFORMATION
  Report Type: 
  Country: None (occurrence: None)
  Receive Date: 20041013
  Receipt Date: 20040930
  Transmission Date: 20050328
  Serious: Yes (Hospitalization, Other)
  Sender: FDA-Public Use
  Company Number: 2004075150

PATIENT
  Age: 49 Year
  Sex: Female
  Weight: 98 kg

DRUGS (3)
  1. ZOLOFT [Suspect]
     Indication: DEPRESSION
     Dosage: 50 MG (50 MG, 1 IN 1 D), ORAL
     Route: 048
     Dates: start: 20010101, end: 20031201
  2. MARVELON (DESOGESTREL, ETHINYLESTRADIOL) [Suspect]
     Indication: CONTRACEPTION
     Dosage: (1 IN 1 D), ORAL
     Route: 048
     Dates: start: 19790101, end: 20040408
  3. LEVOTHYROXINE SODIUM [Concomitant]

REACTIONS (11)
  - ARTHROPATHY [None]
  - BLOOD PRESSURE SYSTOLIC INCREASED [None]
  - CHEST PAIN [None]
  - CHILLS [None]
  - DRUG INTERACTION [None]
  - INFARCTION [None]
  - OEDEMA PERIPHERAL [None]
  - PNEUMONIA [None]
  - PULMONARY EMBOLISM [None]
  - REBOUND EFFECT [None]
  - VENOUS THROMBOSIS LIMB [None]
